FAERS Safety Report 6191312-2 (Version None)
Quarter: 2009Q2

REPORT INFORMATION
  Report Type: 
  Country: None (occurrence: None)
  Receive Date: 20090513
  Receipt Date: 20090513
  Transmission Date: 20091009
  Serious: No
  Sender: FDA-Public Use
  Company Number: None

PATIENT
  Age: 87 Year
  Sex: Female
  Weight: 64.4108 kg

DRUGS (1)
  1. LEVAQUIN [Suspect]
     Dosage: 10 - 250MG ONE A DAY
     Dates: start: 20090309, end: 20090319

REACTIONS (3)
  - DIZZINESS [None]
  - MYALGIA [None]
  - TENDON DISORDER [None]
